FAERS Safety Report 10920972 (Version 1)
Quarter: 2015Q1

REPORT INFORMATION
  Report Type: Spontaneous
  Country: CO (occurrence: CO)
  Receive Date: 20150317
  Receipt Date: 20150317
  Transmission Date: 20150721
  Serious: Yes (Other)
  Sender: FDA-Public Use
  Company Number: CO-NOVOPROD-441871

PATIENT
  Age: 29 Year
  Sex: Female

DRUGS (4)
  1. TRESIBA [Suspect]
     Active Substance: INSULIN DEGLUDEC
     Dosage: 10 IU, QD
     Route: 065
  2. TRESIBA [Suspect]
     Active Substance: INSULIN DEGLUDEC
     Dosage: 5 IU, QD
     Route: 065
  3. NOVORAPID [Suspect]
     Active Substance: INSULIN ASPART
     Indication: TYPE 1 DIABETES MELLITUS
     Dosage: UNK
     Route: 065
  4. TRESIBA [Suspect]
     Active Substance: INSULIN DEGLUDEC
     Indication: TYPE 1 DIABETES MELLITUS
     Dosage: 15 IU, QD
     Route: 065

REACTIONS (2)
  - Seizure [Recovered/Resolved]
  - Hypoglycaemia [Recovered/Resolved]
